FAERS Safety Report 13628719 (Version 1)
Quarter: 2017Q2

REPORT INFORMATION
  Report Type: Spontaneous
  Country: FR (occurrence: FR)
  Receive Date: 20170608
  Receipt Date: 20170608
  Transmission Date: 20170830
  Serious: Yes (Other)
  Sender: FDA-Public Use
  Company Number: FR-FRESENIUS KABI-FK201704936

PATIENT
  Age: 29 Year
  Sex: Male

DRUGS (2)
  1. MITOMYCIN. [Suspect]
     Active Substance: MITOMYCIN
     Indication: THYMOMA MALIGNANT RECURRENT
  2. CISPLATIN (MANUFACTURER UNKNOWN) [Suspect]
     Active Substance: CISPLATIN
     Indication: THYMOMA MALIGNANT RECURRENT

REACTIONS (3)
  - Off label use [Unknown]
  - Medication error [Unknown]
  - Acute kidney injury [Unknown]
